FAERS Safety Report 9215999 (Version 1)
Quarter: 2013Q2

REPORT INFORMATION
  Report Type: Spontaneous
  Country: US (occurrence: US)
  Receive Date: 20130408
  Receipt Date: 20130408
  Transmission Date: 20140414
  Serious: Yes (Other)
  Sender: FDA-Public Use
  Company Number: US-BAYER-2013-042559

PATIENT
  Age: 69 Year
  Sex: Female
  Weight: 77.1 kg

DRUGS (8)
  1. BETASERON [Suspect]
     Dosage: QOD
     Route: 058
  2. CENTRUM SILVER [Concomitant]
  3. METFORMIN [Concomitant]
     Dosage: 500 MG, UNK
  4. BACLOFEN [Concomitant]
     Dosage: 10 MG, UNK
  5. LEVOTHYROXIN [Concomitant]
     Dosage: 150 ?G, UNK
  6. CRESTOR [Concomitant]
     Dosage: 20 MG, UNK
  7. AZOR [ALPRAZOLAM] [Concomitant]
     Dosage: 5 -20 MG
  8. BYSTOLIC [Concomitant]
     Dosage: 2.5 MG, UNK

REACTIONS (3)
  - Gastroenteritis viral [Unknown]
  - Vomiting [Unknown]
  - Diarrhoea [Unknown]
